FAERS Safety Report 17655997 (Version 1)
Quarter: 2020Q2

REPORT INFORMATION
  Report Type: Spontaneous
  Country: US (occurrence: US)
  Receive Date: 20200410
  Receipt Date: 20200410
  Transmission Date: 20200713
  Serious: No
  Sender: FDA-Public Use
  Company Number: US-RECORDATI RARE DISEASES-2082628

PATIENT
  Age: 72 Year
  Sex: Female
  Weight: 85.26 kg

DRUGS (12)
  1. DICLOFENAC SODIUM. [Concomitant]
     Active Substance: DICLOFENAC SODIUM
  2. CARBAGLU [Suspect]
     Active Substance: CARGLUMIC ACID
     Indication: N-ACETYLGLUTAMATE SYNTHASE DEFICIENCY
     Dates: start: 20190917
  3. NP THYROID [Concomitant]
     Active Substance: LEVOTHYROXINE\LIOTHYRONINE
  4. FENOFIBRATE. [Concomitant]
     Active Substance: FENOFIBRATE
  5. TELMISARTAN. [Concomitant]
     Active Substance: TELMISARTAN
  6. ROSUVASTATIN. [Concomitant]
     Active Substance: ROSUVASTATIN
  7. LACTULOSE. [Concomitant]
     Active Substance: LACTULOSE
  8. VICTOZA [Concomitant]
     Active Substance: LIRAGLUTIDE
  9. RANOLAZINE. [Concomitant]
     Active Substance: RANOLAZINE
  10. OXYBUTYNIN. [Concomitant]
     Active Substance: OXYBUTYNIN CHLORIDE
  11. NIFEDIPINE. [Concomitant]
     Active Substance: NIFEDIPINE
  12. TRESIBA [Concomitant]
     Active Substance: INSULIN DEGLUDEC

REACTIONS (1)
  - Nausea [Unknown]

NARRATIVE: CASE EVENT DATE: 2019
